FAERS Safety Report 24720171 (Version 1)
Quarter: 2024Q4

REPORT INFORMATION
  Report Type: Spontaneous
  Country: US (occurrence: US)
  Receive Date: 20241211
  Receipt Date: 20241211
  Transmission Date: 20250115
  Serious: Yes (Other)
  Sender: Haleon PLC
  Company Number: US-HALEON-2213809

PATIENT

DRUGS (1)
  1. ACETAMINOPHEN\PHENIRAMINE MALEATE\PHENYLEPHRINE HYDROCHLORIDE [Suspect]
     Active Substance: ACETAMINOPHEN\PHENIRAMINE MALEATE\PHENYLEPHRINE HYDROCHLORIDE
     Indication: Nasopharyngitis

REACTIONS (1)
  - Thrombocytopenia [Unknown]
